FAERS Safety Report 4948962-8 (Version None)
Quarter: 2006Q1

REPORT INFORMATION
  Report Type: 
  Country: None (occurrence: None)
  Receive Date: 20060321
  Receipt Date: 20060309
  Transmission Date: 20060701
  Serious: Yes (Other)
  Sender: FDA-Public Use
  Company Number: GB-AVENTIS-200612635GDDC

PATIENT
  Age: 49 Year
  Sex: Female

DRUGS (4)
  1. HYDROCORTISONE [Suspect]
     Indication: COLITIS ULCERATIVE
     Route: 042
  2. PREDNISOLONE [Suspect]
  3. CYCLOSPORINE [Concomitant]
  4. AMINOSALICYLIC ACID [Concomitant]

REACTIONS (1)
  - PSYCHOTIC DISORDER [None]
